FAERS Safety Report 14272438 (Version 1)
Quarter: 2017Q4

REPORT INFORMATION
  Report Type: Spontaneous
  Country: JP (occurrence: JP)
  Receive Date: 20171211
  Receipt Date: 20171211
  Transmission Date: 20180321
  Serious: Yes (Other)
  Sender: FDA-Public Use
  Company Number: JP-OTSUKA-2016_009567

PATIENT
  Age: 60 Year
  Sex: Male

DRUGS (4)
  1. ABILIFY [Suspect]
     Active Substance: ARIPIPRAZOLE
     Indication: SCHIZOPHRENIA
     Dosage: UNK, 30MG/DAY(WITH 6MG TAB)
     Route: 048
     Dates: start: 20090707, end: 20160403
  2. ABILIFY [Suspect]
     Active Substance: ARIPIPRAZOLE
     Dosage: 36 MG (12 MG X 3 TABLETS), QD
     Route: 048
     Dates: start: 20090626, end: 20090706
  3. ABILIFY [Suspect]
     Active Substance: ARIPIPRAZOLE
     Indication: SCHIZOPHRENIA
     Dosage: UNK, 30MG/DAY(WITH 12MG TAB)
     Route: 048
     Dates: start: 20090707, end: 20160403
  4. ABILIFY [Suspect]
     Active Substance: ARIPIPRAZOLE
     Indication: SCHIZOPHRENIA
     Dosage: 24 MG, QD
     Route: 048
     Dates: start: 20160404

REACTIONS (3)
  - Myelodysplastic syndrome [Unknown]
  - White blood cell count decreased [Not Recovered/Not Resolved]
  - Prescribed overdose [Unknown]

NARRATIVE: CASE EVENT DATE: 20160406
